FAERS Safety Report 20875087 (Version 2)
Quarter: 2022Q2

REPORT INFORMATION
  Report Type: Spontaneous
  Country: US (occurrence: US)
  Receive Date: 20220526
  Receipt Date: 20220614
  Transmission Date: 20220721
  Serious: Yes (Other)
  Sender: FDA-Public Use
  Company Number: US-BEH-2022145651

PATIENT
  Sex: Female

DRUGS (2)
  1. BERINERT [Suspect]
     Active Substance: HUMAN C1-ESTERASE INHIBITOR
     Indication: Hereditary angioedema
     Dosage: 1400 INTERNATIONAL UNIT, PRN
     Route: 042
     Dates: start: 201910
  2. BERINERT [Suspect]
     Active Substance: HUMAN C1-ESTERASE INHIBITOR
     Indication: Hereditary angioedema
     Dosage: 1400 INTERNATIONAL UNIT, PRN
     Route: 042
     Dates: start: 201910

REACTIONS (1)
  - Impaired gastric emptying [Unknown]
